FAERS Safety Report 4989002-4 (Version None)
Quarter: 2006Q2

REPORT INFORMATION
  Report Type: 
  Country: None (occurrence: None)
  Receive Date: 20060425
  Receipt Date: 20060412
  Transmission Date: 20061013
  Serious: Yes (Death, Other)
  Sender: FDA-Public Use
  Company Number: 2006043800

PATIENT
  Age: 65 Year
  Sex: Female

DRUGS (4)
  1. GEODON [Suspect]
     Indication: AGITATION
     Dosage: 20 MG, ONCE), INTRAMUSCULAR
     Route: 030
     Dates: start: 20060204
  2. ABILIFY [Concomitant]
  3. HALDOL SOLUTAB [Concomitant]
  4. LAMICTAL [Concomitant]

REACTIONS (2)
  - CARDIO-RESPIRATORY ARREST [None]
  - MYOCARDIAL INFARCTION [None]
